FAERS Safety Report 5901727-2 (Version None)
Quarter: 2008Q3

REPORT INFORMATION
  Report Type: 
  Country: None (occurrence: None)
  Receive Date: 20080929
  Receipt Date: 20080926
  Transmission Date: 20090109
  Serious: Yes (Death)
  Sender: FDA-Public Use
  Company Number: B0539050A

PATIENT
  Age: 69 Year
  Sex: Male

DRUGS (2)
  1. ARIXTRA [Suspect]
     Indication: KNEE OPERATION
     Dosage: 2.5MG SINGLE DOSE
     Route: 042
     Dates: start: 20080730, end: 20080730
  2. ANTIBIOTIC [Concomitant]
     Indication: KNEE OPERATION
     Route: 065

REACTIONS (5)
  - GASTROINTESTINAL HAEMORRHAGE [None]
  - HAEMATEMESIS [None]
  - HAEMODYNAMIC INSTABILITY [None]
  - HYPOVOLAEMIC SHOCK [None]
  - VOMITING [None]
